FAERS Safety Report 22243135 (Version 1)
Quarter: 2023Q2

REPORT INFORMATION
  Report Type: Spontaneous
  Country: CN (occurrence: CN)
  Receive Date: 20230424
  Receipt Date: 20230424
  Transmission Date: 20230722
  Serious: Yes (Other)
  Sender: FDA-Public Use
  Company Number: CN-009507513-2304CHN008152

PATIENT
  Age: 53 Year
  Sex: Male

DRUGS (4)
  1. KEYTRUDA [Suspect]
     Active Substance: PEMBROLIZUMAB
     Indication: Oesophageal carcinoma recurrent
     Dosage: 200 MG, Q3W
     Dates: start: 20220320, end: 20220620
  2. KEYTRUDA [Suspect]
     Active Substance: PEMBROLIZUMAB
     Dosage: UNK
     Dates: start: 20220725, end: 20230202
  3. CISPLATIN [Suspect]
     Active Substance: CISPLATIN
     Indication: Oesophageal carcinoma recurrent
     Dosage: 80MG/M2, UP TO 6 DOSES, Q3W,
     Dates: start: 20220320, end: 20220620
  4. FLUOROURACIL [Suspect]
     Active Substance: FLUOROURACIL
     Indication: Oesophageal carcinoma recurrent
     Dosage: Q3W,800MG/M2 (PARTIAL INFORMATION, CLARIFICATION HAS BEEN SENT)
     Dates: start: 20220320, end: 20220620

REACTIONS (8)
  - Myelosuppression [Unknown]
  - Myelosuppression [Unknown]
  - Malignant neoplasm progression [Unknown]
  - Gastrointestinal disorder [Unknown]
  - Therapy partial responder [Unknown]
  - Asthenia [Unknown]
  - Decreased appetite [Unknown]
  - Decreased appetite [Unknown]

NARRATIVE: CASE EVENT DATE: 20220101
